FAERS Safety Report 7972889-0 (Version None)
Quarter: 2011Q4

REPORT INFORMATION
  Report Type: 
  Country: None (occurrence: None)
  Receive Date: 20111213
  Receipt Date: 20111129
  Transmission Date: 20120403
  Serious: Yes (Hospitalization)
  Sender: FDA-Public Use
  Company Number: FR-ROCHE-795421

PATIENT
  Sex: Male
  Weight: 90 kg

DRUGS (11)
  1. ISOSORBIDE DINITRATE [Concomitant]
     Dates: start: 20110801, end: 20110805
  2. BASILIXIMAB [Suspect]
     Indication: TRANSPLANT REJECTION
     Dates: start: 20110730
  3. MYCOPHENOLATE MOFETIL (CELLCEPT) [Suspect]
     Indication: RENAL TRANSPLANT
     Route: 048
  4. PREDNISOLONE SODIUM [Suspect]
     Indication: RENAL TRANSPLANT
     Route: 048
     Dates: start: 20110818
  5. CYCLOSPORINE [Suspect]
     Indication: RENAL TRANSPLANT
     Dosage: DATE OF LAST DOSE PRIOR TO SAE WAS 18 SEP 2011.
     Route: 048
     Dates: start: 20110730, end: 20110919
  6. TACROLIMUS [Suspect]
     Indication: RENAL TRANSPLANT
     Route: 048
     Dates: start: 20110818
  7. SIMULECT [Concomitant]
     Route: 042
     Dates: start: 20110730, end: 20110730
  8. METHYLPREDNISOLONE SODIUM SUCCINATE [Suspect]
     Indication: RENAL TRANSPLANT
     Route: 042
     Dates: start: 20110731, end: 20110806
  9. EZETIMIBE [Concomitant]
     Dosage: TDD:10MG/20MG
     Dates: start: 20110730, end: 20110813
  10. BISOPROLOL FUMARATE [Concomitant]
  11. ACETYLSALICYLIC ACID SRT [Concomitant]

REACTIONS (3)
  - RENAL LYMPHOCELE [None]
  - URINOMA [None]
  - PYELONEPHRITIS ACUTE [None]
